FAERS Safety Report 11772006 (Version 2)
Quarter: 2016Q4

REPORT INFORMATION
  Report Type: Report from Study
  Country: CA (occurrence: CA)
  Receive Date: 20151124
  Receipt Date: 20161026
  Transmission Date: 20170206
  Serious: Yes (Other)
  Sender: FDA-Public Use
  Company Number: PHHY2015CA152735

PATIENT
  Age: 58 Year
  Sex: Female

DRUGS (6)
  1. NASONEX [Concomitant]
     Active Substance: MOMETASONE FUROATE
     Indication: PRODUCT USED FOR UNKNOWN INDICATION
     Dosage: UNK, PRN
     Route: 065
  2. GABAPENTIN. [Concomitant]
     Active Substance: GABAPENTIN
     Indication: PRODUCT USED FOR UNKNOWN INDICATION
     Dosage: 900 MG, QD (300 MG IN MORNING AND 600 MG IN EVENING)
     Route: 065
  3. CYMBALTA [Concomitant]
     Active Substance: DULOXETINE HYDROCHLORIDE
     Dosage: 60 MG, QD
     Route: 065
  4. VESICARE [Concomitant]
     Active Substance: SOLIFENACIN SUCCINATE
     Indication: PRODUCT USED FOR UNKNOWN INDICATION
     Dosage: 5 MG, QD
     Route: 065
  5. CYMBALTA [Concomitant]
     Active Substance: DULOXETINE HYDROCHLORIDE
     Indication: PRODUCT USED FOR UNKNOWN INDICATION
     Dosage: 90 MG, QD
     Route: 065
  6. GILENYA [Suspect]
     Active Substance: FINGOLIMOD HYDROCHLORIDE
     Indication: PRODUCT USED FOR UNKNOWN INDICATION
     Dosage: 0.5 MG, QD
     Route: 048
     Dates: start: 20140602

REACTIONS (18)
  - Vision blurred [Unknown]
  - JC virus test positive [Unknown]
  - Fatigue [Recovering/Resolving]
  - Intellectual disability [Unknown]
  - Sensory loss [Unknown]
  - Neck pain [Unknown]
  - Back pain [Unknown]
  - Anxiety [Unknown]
  - Sleep disorder [Unknown]
  - Hyperreflexia [Unknown]
  - Micturition urgency [Unknown]
  - Pain in extremity [Unknown]
  - White blood cell count decreased [Recovering/Resolving]
  - Musculoskeletal pain [Unknown]
  - Muscle spasms [Unknown]
  - Depression [Recovering/Resolving]
  - Asthenia [Recovering/Resolving]
  - Lymphocyte count decreased [Unknown]

NARRATIVE: CASE EVENT DATE: 201509
